FAERS Safety Report 16756641 (Version 1)
Quarter: 2019Q3

REPORT INFORMATION
  Report Type: Spontaneous
  Country: GR (occurrence: GR)
  Receive Date: 20190829
  Receipt Date: 20190829
  Transmission Date: 20191005
  Serious: Yes (Life-Threatening, Hospitalization)
  Sender: FDA-Public Use
  Company Number: PHHY2019GR200646

PATIENT
  Age: 66 Year
  Sex: Male
  Weight: 66 kg

DRUGS (1)
  1. RYDAPT [Suspect]
     Active Substance: MIDOSTAURIN
     Indication: MYELOID LEUKAEMIA
     Dosage: 50 MG, Q12H
     Route: 048
     Dates: start: 20190401, end: 20190716

REACTIONS (1)
  - Bone marrow necrosis [Unknown]

NARRATIVE: CASE EVENT DATE: 20190716
